FAERS Safety Report 6919946-5 (Version None)
Quarter: 2010Q3

REPORT INFORMATION
  Report Type: 
  Country: None (occurrence: None)
  Receive Date: 20100811
  Receipt Date: 20100802
  Transmission Date: 20110219
  Serious: Yes (Other)
  Sender: FDA-Public Use
  Company Number: PHHY2010JP51299

PATIENT
  Age: 48 Year
  Sex: Female

DRUGS (3)
  1. CYCLOSPORINE [Suspect]
     Indication: POEMS SYNDROME
     Dosage: UNK
     Route: 048
  2. PREDNISOLONE [Concomitant]
     Indication: POEMS SYNDROME
  3. MELPHALAN [Concomitant]
     Indication: POEMS SYNDROME

REACTIONS (2)
  - CONDITION AGGRAVATED [None]
  - PLASMACYTOMA [None]
